FAERS Safety Report 7513153-3 (Version None)
Quarter: 2011Q2

REPORT INFORMATION
  Report Type: 
  Country: None (occurrence: None)
  Receive Date: 20110531
  Receipt Date: 20110519
  Transmission Date: 20111010
  Serious: Yes (Hospitalization, Other)
  Sender: FDA-Public Use
  Company Number: US-MERCK-1101USA01049

PATIENT
  Age: 68 Year
  Sex: Female

DRUGS (2)
  1. FOSAMAX [Suspect]
     Indication: OSTEOPOROSIS PROPHYLAXIS
     Route: 048
     Dates: start: 20060619, end: 20080501
  2. BONIVA [Suspect]
     Indication: OSTEOPOROSIS PROPHYLAXIS
     Route: 048
     Dates: start: 20090713

REACTIONS (23)
  - UTERINE LEIOMYOMA [None]
  - LUMBAR SPINAL STENOSIS [None]
  - LUMBAR RADICULOPATHY [None]
  - BACK PAIN [None]
  - INTESTINAL FUNCTIONAL DISORDER [None]
  - FALL [None]
  - TENDONITIS [None]
  - SPONDYLOLISTHESIS [None]
  - LOW TURNOVER OSTEOPATHY [None]
  - DIVERTICULITIS [None]
  - GASTROINTESTINAL DISORDER [None]
  - TENDON DISORDER [None]
  - OSTEOARTHRITIS [None]
  - MULTIPLE MYELOMA [None]
  - METASTATIC NEOPLASM [None]
  - JOINT EFFUSION [None]
  - ARTHROPATHY [None]
  - CATARACT [None]
  - ANGIOPATHY [None]
  - PAIN IN EXTREMITY [None]
  - ROTATOR CUFF SYNDROME [None]
  - DIVERTICULUM [None]
  - FEMUR FRACTURE [None]
